FAERS Safety Report 9914724 (Version 7)
Quarter: 2015Q1

REPORT INFORMATION
  Report Type: Report from Study
  Country: FR (occurrence: HU)
  Receive Date: 20140220
  Receipt Date: 20150324
  Transmission Date: 20150721
  Serious: Yes (Other)
  Sender: FDA-Public Use
  Company Number: HU-FRI-1000054308

PATIENT
  Age: 79 Year
  Sex: Female
  Weight: 105 kg

DRUGS (15)
  1. PHOSPHO-SODA [Concomitant]
     Active Substance: SODIUM PHOSPHATE, DIBASIC\SODIUM PHOSPHATE, MONOBASIC
     Indication: CONSTIPATION
     Dosage: 45 ML
     Route: 048
     Dates: start: 20130812, end: 20130812
  2. CLOPIDOGREL [Concomitant]
     Active Substance: CLOPIDOGREL BISULFATE
     Indication: CARDIAC DISORDER
     Dosage: 75 MG
     Route: 048
     Dates: start: 2008
  3. XANAX [Concomitant]
     Active Substance: ALPRAZOLAM
     Indication: PROPHYLAXIS
     Dosage: 0.5 MG
     Route: 048
     Dates: start: 20130730
  4. LEVOLAC [Concomitant]
     Active Substance: LACTULOSE
     Indication: CONSTIPATION
     Dosage: 15 ML
     Route: 048
     Dates: start: 20130811, end: 20130811
  5. LEVOMILNACIPRAN EXTENDED-RELEASE CAP [Suspect]
     Active Substance: LEVOMILNACIPRAN
     Indication: CEREBROVASCULAR ACCIDENT
     Dosage: 2 DOSAGE FORMS
     Route: 048
     Dates: start: 20130722
  6. PREDUCTAL [Concomitant]
     Active Substance: TRIMETAZIDINE DIHYDROCHLORIDE
     Indication: HYPERTENSION
     Dosage: 2 DOSAGE FORMS
     Route: 048
     Dates: start: 1993
  7. VALSARTAN/HYDROCHLOROTHIAZIDE [Concomitant]
     Active Substance: HYDROCHLOROTHIAZIDE\VALSARTAN
     Indication: HYPERTENSION
     Dosage: 80/12.5 MG
     Route: 048
     Dates: start: 1993
  8. NARMA [Concomitant]
     Indication: HYPERTENSION
     Dosage: 1.5 MG
     Route: 048
  9. METFORMIN [Concomitant]
     Active Substance: METFORMIN HYDROCHLORIDE
     Indication: DIABETES MELLITUS
     Dosage: 1000 MG
     Route: 048
     Dates: start: 20130723
  10. ESOMEPRAZOL [Concomitant]
     Active Substance: ESOMEPRAZOLE
     Indication: PROPHYLAXIS AGAINST GASTROINTESTINAL ULCER
     Dosage: 20 MG
     Route: 048
  11. NITROMINT [Concomitant]
     Indication: CARDIAC DISORDER
     Dosage: 7.8 MG
     Route: 048
     Dates: start: 1993
  12. TORVALIPIN [Concomitant]
     Indication: HYPERLIPIDAEMIA
     Dosage: 20 MG
     Route: 048
     Dates: start: 20050802
  13. TALLITON [Concomitant]
     Indication: HYPERTENSION
     Dosage: 37.5 MG
     Dates: start: 1993
  14. FUROSEMIDE + KALIUM [Concomitant]
     Indication: CARDIAC FAILURE
     Dates: start: 2011
  15. CLEXANE [Concomitant]
     Active Substance: ENOXAPARIN SODIUM
     Indication: THROMBOSIS PROPHYLAXIS
     Dosage: 0.6 ML
     Route: 058
     Dates: start: 20130715

REACTIONS (2)
  - Glomerular filtration rate decreased [Recovered/Resolved]
  - Psychotic disorder [Recovered/Resolved]

NARRATIVE: CASE EVENT DATE: 20130808
